FAERS Safety Report 19393010 (Version 1)
Quarter: 2021Q2

REPORT INFORMATION
  Report Type: Spontaneous
  Country: US (occurrence: US)
  Receive Date: 20210608
  Receipt Date: 20210608
  Transmission Date: 20210717
  Serious: Yes (Hospitalization)
  Sender: FDA-Public Use
  Company Number: None

PATIENT
  Age: 37 Year
  Sex: Female

DRUGS (7)
  1. CYANOCOBALAM INJ [Concomitant]
  2. METOPROLOL TARTRATE. [Concomitant]
     Active Substance: METOPROLOL TARTRATE
  3. GLATIRAMER [Suspect]
     Active Substance: GLATIRAMER
     Indication: MULTIPLE SCLEROSIS
     Route: 058
     Dates: start: 20210406
  4. PREDNISONE. [Concomitant]
     Active Substance: PREDNISONE
  5. BALCOLTRA [Concomitant]
     Active Substance: ETHINYL ESTRADIOL\LEVONORGESTREL
  6. METHOCARBAM [Concomitant]
     Active Substance: METHOCARBAMOL
  7. UBERELVY [Concomitant]

REACTIONS (6)
  - Hyperhidrosis [None]
  - Flushing [None]
  - Injection site bruising [None]
  - Dyspnoea [None]
  - Feeling hot [None]
  - Therapy interrupted [None]

NARRATIVE: CASE EVENT DATE: 20210528
